FAERS Safety Report 4290238-9 (Version None)
Quarter: 2004Q1

REPORT INFORMATION
  Report Type: 
  Country: None (occurrence: None)
  Receive Date: 20040209
  Receipt Date: 20040128
  Transmission Date: 20041129
  Serious: Yes (Death, Life-Threatening)
  Sender: FDA-Public Use
  Company Number: 04P-163-0247080-00

PATIENT
  Age: 68 Year
  Sex: Male
  Weight: 78.0187 kg

DRUGS (9)
  1. HUMIRA [Suspect]
     Indication: RHEUMATOID ARTHRITIS
     Dates: start: 20031201, end: 20031201
  2. FERROUS SULFATE TAB [Concomitant]
  3. VERAPAMIL [Concomitant]
  4. DOXAZOSIN MESYLATE [Concomitant]
  5. FUROSEMIDE [Concomitant]
  6. POTASSIUM [Concomitant]
  7. ZOCOR [Concomitant]
  8. LANSOPRAZOLE [Concomitant]
  9. OXYGEN [Concomitant]

REACTIONS (2)
  - FEELING ABNORMAL [None]
  - RENAL FAILURE CHRONIC [None]
